FAERS Safety Report 8855589 (Version 1)
Quarter: 2012Q4

REPORT INFORMATION
  Report Type: 
  Country: US (occurrence: US)
  Receive Date: 20121023
  Receipt Date: 20121023
  Transmission Date: 20130627
  Serious: No
  Sender: FDA-Public Use
  Company Number: US-AMGEN-USASP2012059893

PATIENT
  Age: 56 Year
  Sex: Female
  Weight: 79.37 kg

DRUGS (11)
  1. ENBREL [Suspect]
     Indication: PRODUCT USED FOR UNKNOWN INDICATION
     Dosage: 50 mg, qwk
     Route: 058
  2. OSCAL                              /00514701/ [Concomitant]
     Dosage: 500/TAB20OD-3
  3. NEURONTIN [Concomitant]
     Dosage: 800 mg, UNK
  4. AMBIEN [Concomitant]
     Dosage: 12.5 mg, UNK
  5. SYNTHROID [Concomitant]
     Dosage: 100 mg, UNK
  6. LEXAPRO [Concomitant]
     Dosage: 10 mg, UNK
  7. CYMBALTA [Concomitant]
     Dosage: 20 mg, UNK
  8. XANAX [Concomitant]
     Dosage: 0.25 mg, UNK
  9. BENADRYL                           /00000402/ [Concomitant]
     Dosage: UNK
  10. BUTRANS                            /00444001/ [Concomitant]
     Dosage: 10MCG/HR
  11. PERCOCET                           /00446701/ [Concomitant]
     Dosage: 10-325MG

REACTIONS (3)
  - Injection site discolouration [Recovering/Resolving]
  - Sinusitis [Unknown]
  - Injection site cellulitis [Recovering/Resolving]
